FAERS Safety Report 4619459-X (Version None)
Quarter: 2005Q1

REPORT INFORMATION
  Report Type: 
  Country: None (occurrence: None)
  Receive Date: 20050324
  Receipt Date: 20050308
  Transmission Date: 20050727
  Serious: Yes (Hospitalization, Other)
  Sender: FDA-Public Use
  Company Number: USA050189450

PATIENT
  Age: 63 Year
  Sex: Female
  Weight: 91 kg

DRUGS (11)
  1. CYMBALTA [Suspect]
     Indication: DEPRESSION
     Dosage: 60 MG
     Dates: start: 20041218, end: 20050115
  2. ACTOS [Concomitant]
  3. GLUCOPHAGE [Concomitant]
  4. AMARYL [Concomitant]
  5. NEXIUM [Concomitant]
  6. THYROID TAB [Concomitant]
  7. AMBIEN [Concomitant]
  8. VIVELLE-DOT [Concomitant]
  9. PAXIL [Concomitant]
  10. ANTIVERT [Concomitant]
  11. COMBIVENT [Concomitant]

REACTIONS (12)
  - ANOREXIA [None]
  - ASTHENIA [None]
  - BALANCE DISORDER [None]
  - FUNGAL INFECTION [None]
  - GASTRITIS [None]
  - HAEMATOCRIT DECREASED [None]
  - HAEMOGLOBIN DECREASED [None]
  - HYPOKALAEMIA [None]
  - NAUSEA [None]
  - SEDATION [None]
  - THERAPEUTIC AGENT TOXICITY [None]
  - URINARY TRACT INFECTION [None]
